FAERS Safety Report 5420673-4 (Version None)
Quarter: 2007Q3

REPORT INFORMATION
  Report Type: 
  Country: None (occurrence: None)
  Receive Date: 20070821
  Receipt Date: 20070820
  Transmission Date: 20080115
  Serious: Yes (Death, Other)
  Sender: FDA-Public Use
  Company Number: GB-BRISTOL-MYERS SQUIBB COMPANY-13882584

PATIENT
  Sex: Female

DRUGS (6)
  1. CARBOPLATIN [Suspect]
     Indication: RETINOBLASTOMA BILATERAL
  2. ETOPOSIDE [Suspect]
     Indication: RETINOBLASTOMA BILATERAL
  3. METHOTREXATE [Suspect]
     Indication: RETINOBLASTOMA BILATERAL
     Route: 037
  4. CYCLOSPORINE [Suspect]
     Indication: RETINOBLASTOMA BILATERAL
  5. CYTARABINE [Suspect]
     Indication: RETINOBLASTOMA BILATERAL
  6. VINCRISTINE [Suspect]
     Indication: RETINOBLASTOMA BILATERAL

REACTIONS (1)
  - ACUTE MYELOID LEUKAEMIA [None]
